FAERS Safety Report 20959024 (Version 1)
Quarter: 2022Q2

REPORT INFORMATION
  Report Type: Spontaneous
  Country: US (occurrence: US)
  Receive Date: 20220614
  Receipt Date: 20220614
  Transmission Date: 20220721
  Serious: No
  Sender: FDA-Public Use
  Company Number: US-BRISTOL-MYERS SQUIBB COMPANY-2022-046421

PATIENT
  Age: 75 Year
  Sex: Male
  Weight: 68.038 kg

DRUGS (1)
  1. POMALYST [Suspect]
     Active Substance: POMALIDOMIDE
     Indication: Kaposi^s sarcoma
     Dosage: FREQ: 21 DAYS ON, 7 DAYS OFF
     Route: 048
     Dates: start: 20220422

REACTIONS (1)
  - Drug hypersensitivity [Unknown]
